FAERS Safety Report 9170828 (Version 1)
Quarter: 2013Q1

REPORT INFORMATION
  Report Type: Spontaneous
  Country: US (occurrence: US)
  Receive Date: 20130319
  Receipt Date: 20130319
  Transmission Date: 20140127
  Serious: No
  Sender: FDA-Public Use
  Company Number: US-BAYER-2013-033638

PATIENT
  Age: 39 Year
  Sex: Male
  Weight: 106.58 kg

DRUGS (2)
  1. ALEVE CAPLET/TABLET,MIDOL EXTENDED RELIEF CAPLET [Suspect]
     Indication: TOOTHACHE
     Dosage: 2 DF, BID
     Route: 048
     Dates: start: 20130311, end: 20130313
  2. SPARK VITAMIN DRINK [Concomitant]

REACTIONS (5)
  - Overdose [None]
  - Dyspepsia [Not Recovered/Not Resolved]
  - Diarrhoea [Recovered/Resolved]
  - Nausea [Recovered/Resolved]
  - Perianal erythema [Not Recovered/Not Resolved]
